FAERS Safety Report 16242478 (Version 2)
Quarter: 2019Q2

REPORT INFORMATION
  Report Type: Spontaneous
  Country: CN (occurrence: CN)
  Receive Date: 20190426
  Receipt Date: 20190503
  Transmission Date: 20190711
  Serious: Yes (Other)
  Sender: FDA-Public Use
  Company Number: CN-ASTRAZENECA-2019SE63086

PATIENT
  Age: 38 Year
  Sex: Female

DRUGS (4)
  1. IPRATROPIUM BROMIDE. [Concomitant]
     Active Substance: IPRATROPIUM BROMIDE
     Indication: PHARYNGITIS
     Dosage: 2.5ML ONE BRANCH IN NEBULIZATION
     Dates: start: 20190417, end: 20190417
  2. PULMICORT RESPULES [Suspect]
     Active Substance: BUDESONIDE
     Indication: COUGH
     Dosage: 1MG/2ML ONE BRANCH
     Route: 055
     Dates: start: 20190417, end: 20190417
  3. PULMICORT RESPULES [Suspect]
     Active Substance: BUDESONIDE
     Indication: PHARYNGITIS
     Dosage: 1MG/2ML ONE BRANCH
     Route: 055
     Dates: start: 20190417, end: 20190417
  4. IPRATROPIUM BROMIDE. [Concomitant]
     Active Substance: IPRATROPIUM BROMIDE
     Indication: COUGH
     Dosage: 2.5ML ONE BRANCH IN NEBULIZATION
     Dates: start: 20190417, end: 20190417

REACTIONS (3)
  - Hypoxia [Recovered/Resolved]
  - Seizure [Recovered/Resolved]
  - Dyspnoea [Recovered/Resolved]

NARRATIVE: CASE EVENT DATE: 20190417
